FAERS Safety Report 21792270 (Version 1)
Quarter: 2022Q4

REPORT INFORMATION
  Report Type: Spontaneous
  Country: US (occurrence: US)
  Receive Date: 20221229
  Receipt Date: 20221229
  Transmission Date: 20230113
  Serious: Yes (Death, Other)
  Sender: FDA-Public Use
  Company Number: US-AMGEN-USASP2022223561

PATIENT

DRUGS (3)
  1. BEVACIZUMAB [Suspect]
     Active Substance: BEVACIZUMAB
     Indication: Glioblastoma
     Dosage: 10 MILLIGRAM/KILOGRAM, Q2WK
     Route: 065
  2. BEVACIZUMAB [Suspect]
     Active Substance: BEVACIZUMAB
     Dosage: 5 MILLIGRAM/KILOGRAM, Q2WK
     Route: 065
  3. NIVOLUMAB [Concomitant]
     Active Substance: NIVOLUMAB
     Indication: Glioblastoma
     Dosage: 3 MILLIGRAM/KILOGRAM
     Route: 065

REACTIONS (4)
  - Death [Fatal]
  - Glioblastoma [Unknown]
  - Injection site reaction [Unknown]
  - Adverse drug reaction [Unknown]
